FAERS Safety Report 6490040-3 (Version None)
Quarter: 2009Q4

REPORT INFORMATION
  Report Type: 
  Country: None (occurrence: None)
  Receive Date: 20091211
  Receipt Date: 20091204
  Transmission Date: 20100525
  Serious: Yes (Hospitalization, Other)
  Sender: FDA-Public Use
  Company Number: US-ROCHE-663841

PATIENT
  Sex: Male
  Weight: 68 kg

DRUGS (2)
  1. CAPECITABINE [Suspect]
     Dosage: FOUR PILLS A DAY; XELODA STOPPED FOR 3 DOSES
     Route: 048
     Dates: start: 20090928
  2. CAPECITABINE [Suspect]
     Dosage: THREE PILLS A DAY
     Route: 048
     Dates: end: 20091120

REACTIONS (5)
  - DIARRHOEA [None]
  - DISEASE PROGRESSION [None]
  - NAUSEA [None]
  - PULMONARY THROMBOSIS [None]
  - THROMBOSIS [None]
